FAERS Safety Report 10754169 (Version 2)
Quarter: 2018Q3

REPORT INFORMATION
  Report Type: Spontaneous
  Country: FR (occurrence: FR)
  Receive Date: 20150202
  Receipt Date: 20180906
  Transmission Date: 20181010
  Serious: Yes (Hospitalization)
  Sender: FDA-Public Use
  Company Number: FR-ROCHE-1529544

PATIENT
  Age: 36 Year
  Sex: Female
  Weight: 70 kg

DRUGS (3)
  1. TERALITHE [Suspect]
     Active Substance: LITHIUM CARBONATE
     Indication: TOXICITY TO VARIOUS AGENTS
     Dosage: DOSE 2 BOXES OF 400 MG TABLETS
     Route: 048
     Dates: start: 20150101, end: 20150101
  2. SEROPLEX [Suspect]
     Active Substance: ESCITALOPRAM OXALATE
     Indication: TOXICITY TO VARIOUS AGENTS
     Dosage: 10 MG 60 TABLETS
     Route: 048
     Dates: start: 20150101, end: 20150101
  3. VALIUM [Suspect]
     Active Substance: DIAZEPAM
     Indication: TOXICITY TO VARIOUS AGENTS
     Route: 048
     Dates: start: 20150101, end: 20150101

REACTIONS (2)
  - Tremor [Recovered/Resolved]
  - Pyramidal tract syndrome [Recovered/Resolved]

NARRATIVE: CASE EVENT DATE: 20150102
